FAERS Safety Report 17942668 (Version 1)
Quarter: 2020Q2

REPORT INFORMATION
  Report Type: Spontaneous
  Country: CA (occurrence: CA)
  Receive Date: 20200625
  Receipt Date: 20200625
  Transmission Date: 20200714
  Serious: Yes (Hospitalization, Other)
  Sender: FDA-Public Use
  Company Number: CA-PFIZER INC-2020243378

PATIENT
  Sex: Female

DRUGS (7)
  1. COSENTYX [Suspect]
     Active Substance: SECUKINUMAB
     Dosage: UNK
  2. METHOTREXATE SODIUM. [Suspect]
     Active Substance: METHOTREXATE SODIUM
     Dosage: UNK
  3. HUMIRA [Suspect]
     Active Substance: ADALIMUMAB
     Dosage: UNK
     Route: 058
  4. COLCHICINE. [Concomitant]
     Active Substance: COLCHICINE
     Dosage: UNK
  5. SIMPONI [Concomitant]
     Active Substance: GOLIMUMAB
     Dosage: UNK
  6. KENALOG [Suspect]
     Active Substance: TRIAMCINOLONE ACETONIDE
     Dosage: UNK
  7. LEFLUNOMIDE. [Suspect]
     Active Substance: LEFLUNOMIDE
     Dosage: UNK

REACTIONS (8)
  - Hepatic enzyme increased [Unknown]
  - Urticarial vasculitis [Unknown]
  - Joint noise [Unknown]
  - Psoriatic arthropathy [Unknown]
  - Dysstasia [Unknown]
  - Acute febrile neutrophilic dermatosis [Unknown]
  - Hypertension [Unknown]
  - Arthralgia [Unknown]
